FAERS Safety Report 7088650-8 (Version None)
Quarter: 2010Q4

REPORT INFORMATION
  Report Type: 
  Country: None (occurrence: None)
  Receive Date: 20101108
  Receipt Date: 20101102
  Transmission Date: 20110411
  Serious: Yes (Hospitalization, Other)
  Sender: FDA-Public Use
  Company Number: US-BAYER-201014742NA

PATIENT
  Age: 51 Year
  Sex: Male

DRUGS (16)
  1. BETASERON [Suspect]
     Indication: RELAPSING-REMITTING MULTIPLE SCLEROSIS
     Route: 058
     Dates: start: 19950101, end: 19960101
  2. BETASERON [Suspect]
     Dosage: TOTAL DAILY DOSE: 2 MIU
     Route: 058
     Dates: start: 20080306, end: 20100130
  3. BETASERON [Suspect]
     Route: 058
     Dates: start: 20041029, end: 20071211
  4. ANTIDEPRESSANT [Concomitant]
     Route: 065
  5. ANTIHYPERTENSIVE [Concomitant]
     Route: 065
  6. PAIN MEDICATION [Concomitant]
     Route: 065
  7. VITAMIN D [Concomitant]
     Route: 065
  8. MUSCLE RELAXERS [Concomitant]
  9. BACLOFEN [Concomitant]
  10. OMEPRAZOLE [Concomitant]
  11. SIMVASTATIN [Concomitant]
  12. PLAVIX [Concomitant]
  13. ZOLOFT [Concomitant]
  14. RAMIPRIL [Concomitant]
  15. METOPROLOL [Concomitant]
  16. DIURETICS [Concomitant]

REACTIONS (16)
  - CATHETER SITE HAEMATOMA [None]
  - CATHETER SITE HAEMORRHAGE [None]
  - CORONARY ARTERY DISEASE [None]
  - DEPRESSED MOOD [None]
  - GROIN PAIN [None]
  - HAEMOGLOBIN DECREASED [None]
  - HYPOTENSION [None]
  - LOCAL SWELLING [None]
  - MUSCULAR WEAKNESS [None]
  - MUSCULOSKELETAL STIFFNESS [None]
  - MYOCARDIAL INFARCTION [None]
  - POSTINFARCTION ANGINA [None]
  - RESPIRATORY DISTRESS [None]
  - RETROPERITONEAL HAEMATOMA [None]
  - SUICIDAL IDEATION [None]
  - TACHYCARDIA [None]
